FAERS Safety Report 7921883 (Version 3)
Quarter: 2012Q4

REPORT INFORMATION
  Report Type: 
  Country: US (occurrence: US)
  Receive Date: 20110429
  Receipt Date: 20121001
  Transmission Date: 20130627
  Serious: Yes (Other)
  Sender: FDA-Public Use
  Company Number: US-ASTRAZENECA-2010SE58933

PATIENT
  Age: 85 Year
  Sex: Female

DRUGS (1)
  1. NEXIUM [Suspect]
     Route: 048

REACTIONS (7)
  - Hip fracture [Unknown]
  - Fall [Unknown]
  - Facial bones fracture [Unknown]
  - Limb injury [Unknown]
  - Contusion [Unknown]
  - Vomiting [Unknown]
  - Drug dose omission [Unknown]
